FAERS Safety Report 12324147 (Version 1)
Quarter: 2016Q2

REPORT INFORMATION
  Report Type: Spontaneous
  Country: SG (occurrence: SG)
  Receive Date: 20160502
  Receipt Date: 20160502
  Transmission Date: 20160815
  Serious: Yes (Other)
  Sender: FDA-Public Use
  Company Number: SG-BAYER-2016-081784

PATIENT
  Age: 54 Year
  Sex: Male

DRUGS (2)
  1. ADALAT CC [Suspect]
     Active Substance: NIFEDIPINE
     Dosage: UNK
  2. ASPIRIN CARDIO [Suspect]
     Active Substance: ASPIRIN
     Dosage: UNK

REACTIONS (1)
  - Lethargy [Unknown]

NARRATIVE: CASE EVENT DATE: 20160322
